FAERS Safety Report 8768855 (Version 3)
Quarter: 2013Q3

REPORT INFORMATION
  Report Type: Spontaneous
  Country: BR (occurrence: BR)
  Receive Date: 20120906
  Receipt Date: 20130902
  Transmission Date: 20140515
  Serious: Yes (Hospitalization, Other)
  Sender: FDA-Public Use
  Company Number: BR-ROCHE-1112199

PATIENT
  Age: 59 Year
  Sex: Male
  Weight: 125 kg

DRUGS (8)
  1. PEGASYS [Suspect]
     Indication: HEPATITIS C
     Dosage: 20 JUN]
     Route: 065
     Dates: start: 20120612, end: 20130312
  2. RIBAVIRIN [Suspect]
     Indication: HEPATITIS C
     Route: 065
     Dates: start: 20120612, end: 20130209
  3. RIBAVIRIN [Suspect]
     Dosage: TWO IN MORNING AND TWO IN EVENING
     Route: 065
     Dates: start: 20130209, end: 20130312
  4. VICTRELIS [Suspect]
     Indication: HEPATITIS C
     Route: 048
     Dates: start: 20120720, end: 20130312
  5. ALLEGRA [Suspect]
     Indication: PRURITUS
     Route: 065
  6. ATENOLOL [Concomitant]
     Indication: HYPERTENSION
     Route: 048
  7. ENAPREN [Concomitant]
     Indication: HYPERTENSION
     Dosage: DRUG REPORTED AS ENAPROTEC
     Route: 065
  8. AMLOVASC [Concomitant]
     Indication: HYPERTENSION
     Route: 065

REACTIONS (12)
  - Embolism [Unknown]
  - Pleural effusion [Unknown]
  - Fatigue [Recovering/Resolving]
  - Hepatitis C [Recovered/Resolved]
  - Anaemia [Recovered/Resolved]
  - Pneumonia [Unknown]
  - Dysgeusia [Recovered/Resolved]
  - Muscular weakness [Not Recovered/Not Resolved]
  - Pruritus generalised [Recovered/Resolved]
  - Blister [Recovering/Resolving]
  - Weight decreased [Unknown]
  - Thrombocytopenia [Recovered/Resolved]
